FAERS Safety Report 4420932-8 (Version None)
Quarter: 2004Q3

REPORT INFORMATION
  Report Type: 
  Country: None (occurrence: None)
  Receive Date: 20040809
  Receipt Date: 20040726
  Transmission Date: 20050211
  Serious: Yes (Other)
  Sender: FDA-Public Use
  Company Number: US-JNJFOC-20040200247

PATIENT
  Sex: Female
  Weight: 82.1 kg

DRUGS (28)
  1. REMICADE [Suspect]
     Route: 042
  2. REMICADE [Suspect]
     Route: 042
  3. REMICADE [Suspect]
     Route: 042
  4. REMICADE [Suspect]
     Route: 042
  5. REMICADE [Suspect]
     Route: 042
  6. REMICADE [Suspect]
     Route: 042
  7. REMICADE [Suspect]
     Route: 042
  8. REMICADE [Suspect]
     Route: 042
  9. REMICADE [Suspect]
     Route: 042
  10. REMICADE [Suspect]
     Route: 042
  11. REMICADE [Suspect]
     Route: 042
  12. REMICADE [Suspect]
     Indication: UVEITIS
     Route: 042
  13. ALPHAGAN [Concomitant]
     Dosage: TO BOTH EYES
  14. TIMOPTIC [Concomitant]
     Dosage: TO THE RIGHT EYE
  15. FOSAMAX [Concomitant]
  16. ASPIRIN [Concomitant]
  17. WARFARIN SODIUM [Concomitant]
  18. SYNTHROID [Concomitant]
     Indication: HYPOTHYROIDISM
     Dosage: 100 MCG
  19. FOLIC ACID [Concomitant]
  20. ATENOLOL [Concomitant]
  21. METHOTREXATE [Concomitant]
  22. METHOTREXATE [Concomitant]
  23. METHOTREXATE [Concomitant]
  24. COSOPT [Concomitant]
  25. COSOPT [Concomitant]
     Dosage: TO THE RIGHT EYE
  26. LUMIGAN [Concomitant]
     Dosage: TO BOTH EYES
  27. CALCIUM [Concomitant]
  28. MULTIVITAMIN [Concomitant]

REACTIONS (8)
  - ATHEROSCLEROSIS [None]
  - ATRIAL FIBRILLATION [None]
  - BLOOD THYROID STIMULATING HORMONE DECREASED [None]
  - CARDIAC FAILURE CONGESTIVE [None]
  - CARDIOMEGALY [None]
  - HYPERTHYROIDISM [None]
  - LUNG NEOPLASM MALIGNANT [None]
  - LYMPHADENOPATHY [None]
